FAERS Safety Report 15372622 (Version 4)
Quarter: 2018Q3

REPORT INFORMATION
  Report Type: Spontaneous
  Country: US (occurrence: US)
  Receive Date: 20180912
  Receipt Date: 20180920
  Transmission Date: 20181010
  Serious: Yes (Hospitalization, Other)
  Sender: FDA-Public Use
  Company Number: US-UNITED THERAPEUTICS-UNT-2018-014312

PATIENT
  Age: 57 Year
  Sex: Female
  Weight: 105.99 kg

DRUGS (1)
  1. REMODULIN [Suspect]
     Active Substance: TREPROSTINIL
     Indication: PULMONARY ARTERIAL HYPERTENSION
     Dosage: 0.018 ?G/KG, CONTINUING
     Route: 058
     Dates: start: 20180827

REACTIONS (8)
  - Foot fracture [Not Recovered/Not Resolved]
  - Device dislocation [Recovered/Resolved]
  - Disturbance in attention [Recovered/Resolved]
  - Pneumonia [Not Recovered/Not Resolved]
  - Nervousness [Recovered/Resolved]
  - Grip strength decreased [Recovered/Resolved]
  - Agitation [Not Recovered/Not Resolved]
  - Loss of consciousness [Recovered/Resolved]

NARRATIVE: CASE EVENT DATE: 20180903
